FAERS Safety Report 12068831 (Version 1)
Quarter: 2016Q1

REPORT INFORMATION
  Report Type: Spontaneous
  Country: LV (occurrence: LV)
  Receive Date: 20160211
  Receipt Date: 20160211
  Transmission Date: 20160526
  Serious: Yes (Hospitalization)
  Sender: FDA-Public Use
  Company Number: PHHY2016LV016111

PATIENT
  Age: 76 Year
  Sex: Female

DRUGS (6)
  1. PENTALGIN                          /00037801/ [Suspect]
     Active Substance: ACETAMINOPHEN\CODEINE PHOSPHATE\PENTOBARBITAL SODIUM
     Indication: BACK PAIN
  2. IBUMETIN [Suspect]
     Active Substance: IBUPROFEN
     Indication: BACK PAIN
  3. DICLAC [Suspect]
     Active Substance: DICLOFENAC POTASSIUM
     Indication: BACK PAIN
  4. PENTALGIN /00037801/ [Suspect]
     Active Substance: ACETAMINOPHEN\CODEINE PHOSPHATE\PENTOBARBITAL SODIUM
     Indication: MYALGIA
     Route: 065
  5. IBUMETIN [Suspect]
     Active Substance: IBUPROFEN
     Indication: MYALGIA
     Route: 065
  6. DICLAC [Suspect]
     Active Substance: DICLOFENAC POTASSIUM
     Indication: MYALGIA
     Route: 065

REACTIONS (5)
  - Acute kidney injury [Unknown]
  - Apathy [None]
  - Overdose [Unknown]
  - Osteochondrosis [Unknown]
  - Hypertension [Unknown]
